FAERS Safety Report 10384382 (Version 1)
Quarter: 2014Q3

REPORT INFORMATION
  Report Type: Spontaneous
  Country: US (occurrence: None)
  Receive Date: 20140813
  Receipt Date: 20140813
  Transmission Date: 20150326
  Serious: Yes (Other)
  Sender: FDA-Public Use
  Company Number: None

PATIENT
  Age: 70 Year
  Sex: Female

DRUGS (2)
  1. RIBASPHERE [Suspect]
     Active Substance: RIBAVIRIN
     Indication: HEPATITIS C
     Dosage: 1000 MG  400MG IN THE AM AND 600  ORALLY?
     Route: 048
     Dates: end: 20140810
  2. SOVALDI [Suspect]
     Active Substance: SOFOSBUVIR
     Indication: HEPATITIS C
     Dosage: 400 MG  ONCE A DAY  ORALLY?FROM 06-31-2014 TO 08-10-2014
     Route: 048
     Dates: end: 20140810

REACTIONS (5)
  - Asthenia [None]
  - Aphagia [None]
  - Nausea [None]
  - Mobility decreased [None]
  - Oral disorder [None]
